FAERS Safety Report 5882284-6 (Version None)
Quarter: 2008Q3

REPORT INFORMATION
  Report Type: 
  Country: None (occurrence: None)
  Receive Date: 20080912
  Receipt Date: 20080729
  Transmission Date: 20090109
  Serious: No
  Sender: FDA-Public Use
  Company Number: US-ABBOTT-08P-163-0466637-00

PATIENT
  Age: 24 Year
  Sex: Female

DRUGS (2)
  1. HUMIRA [Suspect]
     Indication: PSORIASIS
     Route: 058
     Dates: start: 20080601
  2. HUMIRA [Suspect]
     Dosage: PRE-FILLED SYRINGE
     Dates: start: 20060101, end: 20070901

REACTIONS (2)
  - DRUG INEFFECTIVE [None]
  - PAIN [None]
